FAERS Safety Report 6802919-0 (Version None)
Quarter: 2010Q2

REPORT INFORMATION
  Report Type: 
  Country: None (occurrence: None)
  Receive Date: 20100628
  Receipt Date: 20100621
  Transmission Date: 20101027
  Serious: No
  Sender: FDA-Public Use
  Company Number: US-JNJFOC-20100509614

PATIENT
  Sex: Male
  Weight: 88.45 kg

DRUGS (5)
  1. DURAGESIC-100 [Suspect]
     Indication: PAIN
     Route: 062
  2. DURAGESIC-100 [Suspect]
     Indication: EHLERS-DANLOS SYNDROME
     Dosage: NDC# 50458-093-05
     Route: 062
  3. DURAGESIC-100 [Suspect]
     Dosage: DOSE: 75 UG/HR + 50 UG/HR
     Route: 062
  4. DURAGESIC-100 [Suspect]
     Dosage: NDC# 50458-093-05
     Route: 062
  5. DURAGESIC-100 [Suspect]
     Dosage: DOSE: 75 UG/HR + 50 UG/HR
     Route: 062

REACTIONS (4)
  - DRUG ADMINISTERED AT INAPPROPRIATE SITE [None]
  - EATING DISORDER [None]
  - NERVOUSNESS [None]
  - WITHDRAWAL SYNDROME [None]
